FAERS Safety Report 19212469 (Version 1)
Quarter: 2021Q2

REPORT INFORMATION
  Report Type: Spontaneous
  Country: US (occurrence: US)
  Receive Date: 20210504
  Receipt Date: 20210504
  Transmission Date: 20210717
  Serious: Yes (Hospitalization)
  Sender: FDA-Public Use
  Company Number: None

PATIENT
  Age: 76 Year
  Sex: Female
  Weight: 63.09 kg

DRUGS (19)
  1. OMEPRAZOLE. [Concomitant]
     Active Substance: OMEPRAZOLE
  2. LOSARTAN. [Concomitant]
     Active Substance: LOSARTAN
  3. VERAPAMIL [Concomitant]
     Active Substance: VERAPAMIL HYDROCHLORIDE
  4. CLONIDINE. [Concomitant]
     Active Substance: CLONIDINE
  5. ZOFRAN [Concomitant]
     Active Substance: ONDANSETRON HYDROCHLORIDE
  6. SERTRALINE [Concomitant]
     Active Substance: SERTRALINE HYDROCHLORIDE
  7. PRAVASTATIN. [Concomitant]
     Active Substance: PRAVASTATIN
  8. ASPIRIN. [Concomitant]
     Active Substance: ASPIRIN
  9. HYDROCHLOROTHIAZIDE. [Concomitant]
     Active Substance: HYDROCHLOROTHIAZIDE
  10. BUPROPRION [Concomitant]
     Active Substance: BUPROPION
  11. CLONIDINE. [Concomitant]
     Active Substance: CLONIDINE
  12. ALBUTEROL HFA [Concomitant]
     Active Substance: ALBUTEROL SULFATE
  13. ATENOLOL. [Concomitant]
     Active Substance: ATENOLOL
  14. VITAMIN E [Concomitant]
     Active Substance: .ALPHA.-TOCOPHEROL
  15. PROCHLORPERAZINE. [Concomitant]
     Active Substance: PROCHLORPERAZINE
  16. BREO ELLIPTA [Concomitant]
     Active Substance: FLUTICASONE FUROATE\VILANTEROL TRIFENATATE
  17. PIQRAY [Suspect]
     Active Substance: ALPELISIB
     Indication: BREAST CANCER
     Route: 048
     Dates: start: 20210405, end: 20210504
  18. POTASSIUM CHLORIDE. [Concomitant]
     Active Substance: POTASSIUM CHLORIDE
  19. ALPRAZOLAM. [Concomitant]
     Active Substance: ALPRAZOLAM

REACTIONS (2)
  - Ketoacidosis [None]
  - Therapy interrupted [None]

NARRATIVE: CASE EVENT DATE: 20210504
